FAERS Safety Report 6156672-7 (Version None)
Quarter: 2009Q2

REPORT INFORMATION
  Report Type: 
  Country: None (occurrence: None)
  Receive Date: 20090416
  Receipt Date: 20090409
  Transmission Date: 20091009
  Serious: Yes (Hospitalization)
  Sender: FDA-Public Use
  Company Number: US-ASTRAZENECA-2008UW06697

PATIENT
  Age: 81 Year
  Sex: Female
  Weight: 60.8 kg

DRUGS (6)
  1. ARIMIDEX [Suspect]
     Indication: BREAST CANCER
     Route: 048
  2. TOPROL-XL [Suspect]
     Route: 048
     Dates: end: 20080101
  3. TOPROL-XL [Suspect]
     Route: 048
     Dates: start: 20080101
  4. SYNTHROID [Concomitant]
     Route: 048
  5. EQUATE PAIN RELIEVER [Concomitant]
  6. FOSAMAX [Concomitant]
     Route: 048

REACTIONS (3)
  - DYSPNOEA [None]
  - HEART RATE INCREASED [None]
  - MUSCULAR WEAKNESS [None]
